FAERS Safety Report 11684184 (Version 6)
Quarter: 2016Q1

REPORT INFORMATION
  Report Type: Report from Study
  Country: US (occurrence: US)
  Receive Date: 20151029
  Receipt Date: 20160128
  Transmission Date: 20160525
  Serious: Yes (Death, Hospitalization, Other)
  Sender: FDA-Public Use
  Company Number: US-BAYER-2015-445390

PATIENT
  Age: 77 Year
  Sex: Female
  Weight: 77.98 kg

DRUGS (6)
  1. ADEMPAS [Suspect]
     Active Substance: RIOCIGUAT
     Indication: PULMONARY HYPERTENSION
     Dosage: 1 MG, TID
     Route: 048
  2. REMODULIN [Suspect]
     Active Substance: TREPROSTINIL
     Indication: PULMONARY HYPERTENSION
     Dosage: 67 NG/KG/MIN
     Route: 042
     Dates: start: 20080724
  3. ADEMPAS [Suspect]
     Active Substance: RIOCIGUAT
     Indication: PULMONARY HYPERTENSION
     Dosage: UNK
     Route: 048
     Dates: start: 20151007
  4. ADEMPAS [Suspect]
     Active Substance: RIOCIGUAT
     Indication: PULMONARY HYPERTENSION
     Dosage: 0.5 MG, TID
     Route: 048
  5. WARFARIN [Concomitant]
     Active Substance: WARFARIN
  6. ADEMPAS [Suspect]
     Active Substance: RIOCIGUAT
     Indication: PULMONARY HYPERTENSION
     Dosage: 1 MG, TID
     Route: 048

REACTIONS (19)
  - Death [Fatal]
  - Decreased appetite [Unknown]
  - Nausea [Unknown]
  - Periorbital oedema [Unknown]
  - Hospitalisation [None]
  - Decreased appetite [None]
  - Dehydration [Unknown]
  - Influenza [Unknown]
  - Fluid overload [Unknown]
  - Vomiting [Unknown]
  - Nausea [Unknown]
  - Dysphagia [Unknown]
  - Fatigue [Unknown]
  - Oedema peripheral [Unknown]
  - Skin ulcer [None]
  - Renal failure [Unknown]
  - Hospice care [None]
  - Contusion [Unknown]
  - Device related infection [Unknown]

NARRATIVE: CASE EVENT DATE: 201510
